FAERS Safety Report 8666922 (Version 7)
Quarter: 2013Q3

REPORT INFORMATION
  Report Type: Spontaneous
  Country: US (occurrence: US)
  Receive Date: 20120716
  Receipt Date: 20130711
  Transmission Date: 20140515
  Serious: Yes (Hospitalization, Disabling, Other)
  Sender: FDA-Public Use
  Company Number: US-009507513-1207USA003583

PATIENT
  Sex: Female
  Weight: 88.73 kg

DRUGS (6)
  1. FOSAMAX [Suspect]
     Indication: OSTEOPOROSIS
     Dosage: 70 MG,QW
     Route: 048
     Dates: start: 20020125, end: 200803
  2. FOSAMAX [Suspect]
     Indication: OSTEOPENIA
     Dosage: 10 MG, QD
     Route: 048
     Dates: start: 20010526, end: 200201
  3. ALENDRONATE SODIUM [Suspect]
     Indication: OSTEOPOROSIS
     Dosage: 70 MG, QW
     Route: 048
     Dates: start: 2008, end: 20091217
  4. FUROSEMIDE [Concomitant]
     Indication: HYPERTENSION
     Dosage: 20 MG, UNK
     Route: 048
  5. LITHIUM [Concomitant]
     Indication: MANIA
     Dosage: UNK
  6. LISINOPRIL [Concomitant]
     Indication: HYPERTENSION
     Dosage: 20 MG, QD
     Route: 048

REACTIONS (37)
  - Open reduction of fracture [Recovered/Resolved with Sequelae]
  - Fall [Recovered/Resolved]
  - Intramedullary rod insertion [Recovered/Resolved with Sequelae]
  - Internal fixation of fracture [Recovered/Resolved with Sequelae]
  - Bone graft [Recovered/Resolved with Sequelae]
  - Bone density decreased [Unknown]
  - Ileus paralytic [Unknown]
  - Femur fracture [Recovered/Resolved with Sequelae]
  - Femur fracture [Recovered/Resolved with Sequelae]
  - Fracture nonunion [Recovered/Resolved with Sequelae]
  - Bipolar disorder [Unknown]
  - Anxiety [Unknown]
  - Diabetes mellitus [Unknown]
  - Benign breast neoplasm [Unknown]
  - Tooth extraction [Unknown]
  - Device failure [Unknown]
  - Device failure [Unknown]
  - Wheezing [Recovered/Resolved]
  - Pharyngeal erythema [Unknown]
  - Gout [Unknown]
  - Atelectasis [Unknown]
  - Pneumonia [Unknown]
  - Cholelithiasis [Unknown]
  - Intestinal dilatation [Unknown]
  - Bladder disorder [Unknown]
  - Hyperkeratosis [Unknown]
  - Glossitis [Not Recovered/Not Resolved]
  - Rotator cuff syndrome [Unknown]
  - Bursa disorder [Unknown]
  - Spondylolisthesis [Unknown]
  - Osteoarthritis [Unknown]
  - Biopsy bone [Unknown]
  - Tooth loss [Unknown]
  - Tooth extraction [Unknown]
  - Hypercholesterolaemia [Unknown]
  - Drug ineffective [Unknown]
  - Arthralgia [Unknown]
